FAERS Safety Report 16738474 (Version 1)
Quarter: 2019Q3

REPORT INFORMATION
  Report Type: Spontaneous
  Country: US (occurrence: US)
  Receive Date: 20190826
  Receipt Date: 20190826
  Transmission Date: 20191005
  Serious: No
  Sender: FDA-Public Use
  Company Number: US-GLAXOSMITHKLINE-US2019151219

PATIENT
  Sex: Female

DRUGS (4)
  1. REQUIP XL [Suspect]
     Active Substance: ROPINIROLE HYDROCHLORIDE
     Indication: PRODUCT USED FOR UNKNOWN INDICATION
     Dosage: 10 MG, UNK
     Route: 065
     Dates: start: 2012
  2. ROPINIROLE PROLONGED-RELEASE TABLET [Suspect]
     Active Substance: ROPINIROLE
     Indication: PRODUCT USED FOR UNKNOWN INDICATION
     Dosage: 10 MG, UNK
     Route: 065
  3. ROPINIROLE PROLONGED-RELEASE TABLET [Suspect]
     Active Substance: ROPINIROLE
     Dosage: UNK (INCREASED BY 2MG GRADUALLY OVER THE COURSE OF A YEAR)
     Route: 065
  4. REQUIP XL [Suspect]
     Active Substance: ROPINIROLE HYDROCHLORIDE
     Dosage: 16 MG, UNK
     Route: 065

REACTIONS (2)
  - Feeling jittery [Recovered/Resolved]
  - Drug ineffective [Unknown]
